FAERS Safety Report 7989363-8 (Version None)
Quarter: 2011Q4

REPORT INFORMATION
  Report Type: 
  Country: None (occurrence: None)
  Receive Date: 20111219
  Receipt Date: 20111207
  Transmission Date: 20120403
  Serious: Yes (Disabling, Other)
  Sender: FDA-Public Use
  Company Number: MX-SANOFI-AVENTIS-2011SA080623

PATIENT
  Age: 53 Year
  Sex: Female
  Weight: 63 kg

DRUGS (2)
  1. HUMALOG [Concomitant]
     Route: 058
     Dates: start: 20090101
  2. AMARYL [Suspect]
     Route: 048
     Dates: start: 20090101

REACTIONS (2)
  - HIP FRACTURE [None]
  - EYE DISORDER [None]
